FAERS Safety Report 7759739-2 (Version None)
Quarter: 2011Q3

REPORT INFORMATION
  Report Type: 
  Country: None (occurrence: None)
  Receive Date: 20110919
  Receipt Date: 20110908
  Transmission Date: 20111222
  Serious: Yes (Hospitalization)
  Sender: FDA-Public Use
  Company Number: US-UCBSA-040459

PATIENT
  Sex: Male
  Weight: 72.72 kg

DRUGS (7)
  1. CIMZIA [Suspect]
     Indication: CROHN'S DISEASE
     Route: 058
     Dates: start: 20100823
  2. TPN [Concomitant]
  3. VANCOMYCIN [Concomitant]
  4. CIPROFLOXACIN [Concomitant]
     Indication: CROHN'S DISEASE
     Dates: start: 20100101, end: 20100101
  5. BUDESONIDE [Concomitant]
     Indication: CROHN'S DISEASE
     Dates: start: 20100601
  6. MYCAMINE [Concomitant]
  7. OCTREOTIDE ACETATE [Concomitant]

REACTIONS (4)
  - ABDOMINAL ABSCESS [None]
  - FUNGAEMIA [None]
  - DEVICE RELATED SEPSIS [None]
  - ANAEMIA [None]
